FAERS Safety Report 6347138-X (Version None)
Quarter: 2009Q3

REPORT INFORMATION
  Report Type: 
  Country: None (occurrence: None)
  Receive Date: 20090910
  Receipt Date: 20090902
  Transmission Date: 20100115
  Serious: Yes (Other)
  Sender: FDA-Public Use
  Company Number: US-PURDUE-USA-2009-0039520

PATIENT
  Age: 27 Year
  Sex: Female

DRUGS (3)
  1. OXYCODONE HYDROCHLORIDE [Suspect]
     Indication: DRUG ABUSE
  2. COCAINE [Suspect]
     Indication: DRUG ABUSE
  3. CANNABIS [Suspect]
     Indication: DRUG ABUSE

REACTIONS (13)
  - ABDOMINAL PAIN UPPER [None]
  - ANKLE FRACTURE [None]
  - DYSARTHRIA [None]
  - EYELID PTOSIS [None]
  - FEELING ABNORMAL [None]
  - HEAD INJURY [None]
  - INJURY [None]
  - MEMORY IMPAIRMENT [None]
  - MIOSIS [None]
  - MUSCULOSKELETAL PAIN [None]
  - PAIN [None]
  - ROAD TRAFFIC ACCIDENT [None]
  - SUBSTANCE ABUSE [None]
